FAERS Safety Report 25673030 (Version 1)
Quarter: 2025Q3

REPORT INFORMATION
  Report Type: Report from Study
  Country: US (occurrence: US)
  Receive Date: 20250812
  Receipt Date: 20250812
  Transmission Date: 20251021
  Serious: Yes (Hospitalization, Other)
  Sender: ACADIA PHARMACEUTICALS
  Company Number: US-ACADIA PHARMACEUTICALS INC.-ACA-2025-PIM-009065

PATIENT
  Age: 83 Year
  Sex: Male

DRUGS (14)
  1. NUPLAZID [Suspect]
     Active Substance: PIMAVANSERIN TARTRATE
     Indication: Parkinson^s disease
     Dosage: 34 MILLIGRAM, QD
     Route: 048
     Dates: start: 20250226
  2. ICY HOT (MENTHOL) [Concomitant]
     Active Substance: MENTHOL
  3. DICLOFENAC [Concomitant]
     Active Substance: DICLOFENAC
  4. ATORVASTATIN [Concomitant]
     Active Substance: ATORVASTATIN
  5. CLONAZEPAM [Concomitant]
     Active Substance: CLONAZEPAM
  6. DONEPEZIL [Concomitant]
     Active Substance: DONEPEZIL
  7. DULOXETINE [Concomitant]
     Active Substance: DULOXETINE
  8. GLUCOSAMIN + CHONDROITIN [Concomitant]
  9. KRILL OIL [Concomitant]
     Active Substance: DIETARY SUPPLEMENT\KRILL OIL
  10. LISINOPRIL [Concomitant]
     Active Substance: LISINOPRIL
  11. MELATONIN [Concomitant]
     Active Substance: MELATONIN
  12. VITAMINS NOS [Concomitant]
     Active Substance: VITAMINS
  13. QUETIAPINE [Concomitant]
     Active Substance: QUETIAPINE
  14. VITAMIN D3 [Concomitant]
     Active Substance: CHOLECALCIFEROL

REACTIONS (4)
  - Rib fracture [Not Recovered/Not Resolved]
  - Fall [Not Recovered/Not Resolved]
  - General physical health deterioration [Not Recovered/Not Resolved]
  - Patient elopement [Not Recovered/Not Resolved]

NARRATIVE: CASE EVENT DATE: 20250730
